FAERS Safety Report 9486569 (Version 1)
Quarter: 2013Q3

REPORT INFORMATION
  Report Type: Spontaneous
  Country: US (occurrence: None)
  Receive Date: 20130827
  Receipt Date: 20130827
  Transmission Date: 20140515
  Serious: Yes (Other)
  Sender: FDA-Public Use
  Company Number: None

PATIENT
  Age: 58 Year
  Sex: Female
  Weight: 117.94 kg

DRUGS (8)
  1. ATENOLOL [Suspect]
     Indication: HEART RATE INCREASED
  2. ATENOLOL [Suspect]
     Indication: BLOOD PRESSURE INCREASED
  3. BESTYLIN SINGULAR ZYRTEC [Concomitant]
  4. NASONEX [Concomitant]
  5. ALIVE [Concomitant]
  6. MULTIVITAMIN [Concomitant]
  7. POTASSIUM [Concomitant]
  8. TYLENOL ARTHRITIS PAIN [Concomitant]

REACTIONS (12)
  - Cough [None]
  - Malaise [None]
  - Fatigue [None]
  - Abdominal pain upper [None]
  - Lymphadenopathy [None]
  - Syncope [None]
  - Vertigo [None]
  - Diarrhoea [None]
  - Arthralgia [None]
  - Throat irritation [None]
  - Lacrimation increased [None]
  - Rhinorrhoea [None]
